FAERS Safety Report 11698764 (Version 1)
Quarter: 2015Q4

REPORT INFORMATION
  Report Type: Spontaneous
  Country: US (occurrence: US)
  Receive Date: 20151104
  Receipt Date: 20151104
  Transmission Date: 20160304
  Serious: Yes (Other)
  Sender: FDA-Public Use
  Company Number: US-ASTRAZENECA-2013SE77126

PATIENT
  Age: 30 Year
  Sex: Female
  Weight: 144.7 kg

DRUGS (10)
  1. BYETTA [Suspect]
     Active Substance: EXENATIDE
     Route: 065
     Dates: start: 20110301
  2. HYDROCODONE/ACETAMINOPHEN [Concomitant]
     Active Substance: ACETAMINOPHEN\HYDROCODONE
     Dosage: TAKE 1 TABLET BY MOUTH EVERY 6 HOURS
     Dates: start: 20130619
  3. METOLAZONE. [Concomitant]
     Active Substance: METOLAZONE
     Dates: start: 20101129
  4. MICARDIS [Concomitant]
     Active Substance: TELMISARTAN
     Dates: start: 20121103
  5. BYETTA [Suspect]
     Active Substance: EXENATIDE
     Route: 065
     Dates: start: 2003, end: 2010
  6. BUMETANIDE. [Concomitant]
     Active Substance: BUMETANIDE
     Dates: start: 20130521
  7. SPIRONOLACTONE. [Concomitant]
     Active Substance: SPIRONOLACTONE
     Dates: start: 20130521
  8. CLONIDINE. [Concomitant]
     Active Substance: CLONIDINE
     Dates: start: 20130829
  9. ONDANSETRON [Concomitant]
     Active Substance: ONDANSETRON
     Dates: start: 20121103
  10. BYETTA [Suspect]
     Active Substance: EXENATIDE
     Dosage: 10 MCG/0.04 ML. TWICE A DAY
     Route: 058
     Dates: start: 20061027

REACTIONS (4)
  - Pancreatitis [Unknown]
  - Goitre [Unknown]
  - Papillary thyroid cancer [Unknown]
  - Post procedural hypothyroidism [Unknown]

NARRATIVE: CASE EVENT DATE: 2005
